FAERS Safety Report 7533145-8 (Version None)
Quarter: 2011Q2

REPORT INFORMATION
  Report Type: 
  Country: None (occurrence: None)
  Receive Date: 20110608
  Receipt Date: 20090316
  Transmission Date: 20111010
  Serious: Yes (Other)
  Sender: FDA-Public Use
  Company Number: US-BAYER-200915597NA

PATIENT
  Age: 50 Year
  Sex: Female
  Weight: 105 kg

DRUGS (12)
  1. TRASYLOL [Suspect]
     Indication: CORONARY ARTERY BYPASS
     Dosage: 1ML TEST DOSE, LOADING DOSE UNSPECIFIED
     Route: 042
     Dates: start: 20030603, end: 20030603
  2. FRESH FROZEN PLASMA [Concomitant]
     Dosage: 18 UNITS
     Route: 042
     Dates: start: 20030602, end: 20030620
  3. HEPARIN [Concomitant]
     Dosage: UNK
     Dates: end: 20030715
  4. METOPROLOL [Concomitant]
     Dosage: 100 MG TWICE EVERY DAY
  5. ANCEF [Concomitant]
     Dosage: UNK
     Dates: start: 20030603
  6. PLATELETS [Concomitant]
     Dosage: 30 PACKS
     Route: 042
     Dates: start: 20030602, end: 20030620
  7. GLUCOPHAGE [Concomitant]
     Dosage: 500 MG TWICE
  8. RED BLOOD CELLS [Concomitant]
     Dosage: 13 UNITS
     Route: 042
     Dates: start: 20030602, end: 20030620
  9. AMIODARONE HCL [Concomitant]
     Dosage: UNK
     Route: 042
     Dates: start: 20030604, end: 20030607
  10. GEMFIBROZIL [Concomitant]
     Dosage: 600 MG ONCE EVERY DAY
  11. ACETYLSALICYLIC ACID SRT [Concomitant]
     Dosage: 325 MG ONCE EVERY DAY
  12. GLYNASE [Concomitant]
     Dosage: 6 MG TWICE EVERY DAY

REACTIONS (8)
  - ANXIETY [None]
  - ADVERSE EVENT [None]
  - PAIN [None]
  - DEPRESSION [None]
  - RENAL FAILURE [None]
  - INJURY [None]
  - FEAR [None]
  - ANHEDONIA [None]
